FAERS Safety Report 24908268 (Version 5)
Quarter: 2025Q3

REPORT INFORMATION
  Report Type: Spontaneous
  Country: AU (occurrence: AU)
  Receive Date: 20250131
  Receipt Date: 20250809
  Transmission Date: 20251020
  Serious: Yes (Death, Other)
  Sender: ALEXION PHARMACEUTICALS
  Company Number: AU-AstraZeneca-CH-00796494A

PATIENT
  Age: 71 Year
  Sex: Male
  Weight: 59.1 kg

DRUGS (5)
  1. SOLIRIS [Suspect]
     Active Substance: ECULIZUMAB
     Indication: Thrombotic microangiopathy
     Dosage: UNK UNK, Q2W
     Dates: start: 20240716
  2. CIPRO [Concomitant]
     Active Substance: CIPROFLOXACIN HYDROCHLORIDE
     Dosage: 250 MILLIGRAM, BID
     Route: 065
     Dates: start: 20240716
  3. RAMIPRIL [Concomitant]
     Active Substance: RAMIPRIL
     Route: 065
  4. ERYTHROPOIETIN [Concomitant]
     Active Substance: ERYTHROPOIETIN
     Route: 065
  5. DIGOXIN [Concomitant]
     Active Substance: DIGOXIN
     Route: 065

REACTIONS (13)
  - Atrial fibrillation [Fatal]
  - Ileus [Fatal]
  - Asthenia [Fatal]
  - Neutropenia [Unknown]
  - Portal venous gas [Unknown]
  - Ascites [Unknown]
  - Off label use [Unknown]
  - Intestinal dilatation [Unknown]
  - Pyrexia [Unknown]
  - Skin ulcer [Unknown]
  - Abdominal pain [Unknown]
  - Blood pressure decreased [Unknown]
  - Tachycardia [Unknown]

NARRATIVE: CASE EVENT DATE: 20240725
